FAERS Safety Report 4656304-0 (Version None)
Quarter: 2005Q2

REPORT INFORMATION
  Report Type: 
  Country: None (occurrence: None)
  Receive Date: 20050509
  Receipt Date: 20050405
  Transmission Date: 20051028
  Serious: No
  Sender: FDA-Public Use
  Company Number: US-GLAXOSMITHKLINE-A0552780A

PATIENT
  Age: 48 Year
  Sex: Female

DRUGS (3)
  1. AVANDAMET [Suspect]
     Indication: DIABETES MELLITUS NON-INSULIN-DEPENDENT
     Route: 048
  2. LIPITOR [Concomitant]
  3. AMARYL [Concomitant]

REACTIONS (2)
  - BONE PAIN [None]
  - DIARRHOEA [None]
